FAERS Safety Report 18758606 (Version 4)
Quarter: 2021Q1

REPORT INFORMATION
  Report Type: Report from Study
  Country: US (occurrence: US)
  Receive Date: 20210119
  Receipt Date: 20210301
  Transmission Date: 20210419
  Serious: Yes (Hospitalization, Other)
  Sender: FDA-Public Use
  Company Number: US-JNJFOC-20210112218

PATIENT
  Age: 69 Year
  Sex: Male
  Weight: 81.8 kg

DRUGS (4)
  1. OPSUMIT [Suspect]
     Active Substance: MACITENTAN
     Indication: PULMONARY ARTERIAL HYPERTENSION
     Route: 048
  2. TADALAFIL. [Concomitant]
     Active Substance: TADALAFIL
  3. SELEXIPAG [Suspect]
     Active Substance: SELEXIPAG
     Indication: PULMONARY ARTERIAL HYPERTENSION
     Route: 048
  4. REMODULIN [Suspect]
     Active Substance: TREPROSTINIL

REACTIONS (10)
  - Infusion site erythema [Unknown]
  - Fatigue [Unknown]
  - Syncope [Unknown]
  - Diarrhoea [Not Recovered/Not Resolved]
  - Infusion site pain [Not Recovered/Not Resolved]
  - Pulmonary hypertension [Unknown]
  - Pruritus [Recovered/Resolved]
  - Infusion site induration [Unknown]
  - Dizziness [Unknown]
  - Therapy change [Unknown]

NARRATIVE: CASE EVENT DATE: 20210105
